FAERS Safety Report 4022375 (Version 2)
Quarter: 2012Q4

REPORT INFORMATION
  Report Type: Spontaneous
  Country: DE (occurrence: None)
  Receive Date: 20031015
  Receipt Date: 20121001
  Transmission Date: 20130627
  Serious: Yes (Other)
  Sender: FDA-Public Use
  Company Number: 2003EU006843

PATIENT
  Age: 7 Month
  Sex: Male

DRUGS (2)
  1. PROTOPIC [Suspect]
     Indication: DERMATITIS EXFOLIATIVE GENERALISED
     Route: 061
  2. PROTOPIC [Suspect]
     Indication: DERMATITIS EXFOLIATIVE GENERALISED
     Route: 061

REACTIONS (4)
  - Dermatitis [None]
  - Drug level increased [None]
  - Tremor [None]
  - Disease recurrence [None]
